FAERS Safety Report 6211185-9 (Version None)
Quarter: 2009Q2

REPORT INFORMATION
  Report Type: 
  Country: None (occurrence: None)
  Receive Date: 20090602
  Receipt Date: 20090518
  Transmission Date: 20091009
  Serious: Yes (Other)
  Sender: FDA-Public Use
  Company Number: ES-ROCHE-635434

PATIENT

DRUGS (3)
  1. ENFUVIRTIDE [Suspect]
     Indication: HIV INFECTION
     Dates: start: 20071122, end: 20080504
  2. LOPINAVIR AND RITONAVIR [Suspect]
     Indication: HIV INFECTION
     Dates: start: 20071122
  3. EMTRICITABINE/TENOFOVIR [Suspect]
     Indication: HIV INFECTION
     Dates: start: 20071122

REACTIONS (2)
  - CONGENITAL ANOMALY [None]
  - CONGENITAL MUSCULOSKELETAL ANOMALY [None]
